FAERS Safety Report 5780435-5 (Version None)
Quarter: 2008Q2

REPORT INFORMATION
  Report Type: 
  Country: None (occurrence: None)
  Receive Date: 20080620
  Receipt Date: 20080611
  Transmission Date: 20081010
  Serious: Yes (Hospitalization, Other)
  Sender: FDA-Public Use
  Company Number: US-ROCHE-570349

PATIENT
  Sex: Female
  Weight: 45.4 kg

DRUGS (2)
  1. PEGASYS [Suspect]
     Route: 065
     Dates: start: 20080118, end: 20080318
  2. RIBAVIRIN [Suspect]
     Route: 065
     Dates: start: 20080118, end: 20080318

REACTIONS (8)
  - BILIARY CIRRHOSIS PRIMARY [None]
  - BLOOD ALKALINE PHOSPHATASE INCREASED [None]
  - CELLULITIS [None]
  - COUGH [None]
  - FATIGUE [None]
  - GAMMA-GLUTAMYLTRANSFERASE INCREASED [None]
  - HAEMOGLOBIN DECREASED [None]
  - NAUSEA [None]
